FAERS Safety Report 5591972-0 (Version None)
Quarter: 2008Q1

REPORT INFORMATION
  Report Type: 
  Country: None (occurrence: None)
  Receive Date: 20080115
  Receipt Date: 20080106
  Transmission Date: 20080703
  Serious: Yes (Hospitalization)
  Sender: FDA-Public Use
  Company Number: US-ELI_LILLY_AND_COMPANY-US200801001341

PATIENT
  Sex: Female
  Weight: 82.54 kg

DRUGS (7)
  1. BYETTA [Suspect]
     Dosage: 5 UG, 2/D
     Route: 058
     Dates: start: 20070301, end: 20070401
  2. BYETTA [Suspect]
     Dosage: 10 UG, 2/D
     Route: 058
     Dates: start: 20070401
  3. AMARYL [Concomitant]
     Dosage: UNK, UNKNOWN
     Dates: end: 20071201
  4. PRANDIN /USA/ [Concomitant]
     Dosage: UNK, UNKNOWN
     Dates: start: 20071201
  5. COUMADIN [Concomitant]
     Dosage: UNK, UNKNOWN
     Dates: end: 20071201
  6. COUMADIN [Concomitant]
     Dosage: UNK, UNKNOWN
     Dates: start: 20071201
  7. HEPARIN [Concomitant]
     Dosage: UNK, UNKNOWN
     Dates: start: 20071201, end: 20071201

REACTIONS (4)
  - ARRHYTHMIA [None]
  - CARDIAC PACEMAKER MALFUNCTION [None]
  - NAUSEA [None]
  - SCAR [None]
